FAERS Safety Report 9918810 (Version 2)
Quarter: 2014Q1

REPORT INFORMATION
  Report Type: Report from Study
  Country: GB (occurrence: GB)
  Receive Date: 20140224
  Receipt Date: 20140228
  Transmission Date: 20141002
  Serious: Yes (Death)
  Sender: FDA-Public Use
  Company Number: GB-ROCHE-1353994

PATIENT
  Age: 90 Year
  Sex: Female

DRUGS (1)
  1. RANIBIZUMAB [Suspect]
     Indication: AGE-RELATED MACULAR DEGENERATION
     Route: 050

REACTIONS (1)
  - Death [Fatal]
